FAERS Safety Report 8088310-0 (Version None)
Quarter: 2012Q1

REPORT INFORMATION
  Report Type: 
  Country: None (occurrence: None)
  Receive Date: 20120128
  Receipt Date: 20110423
  Transmission Date: 20120608
  Serious: No
  Sender: FDA-Public Use
  Company Number: US-ABBOTT-11P-163-0721403-00

PATIENT
  Age: 48 Year
  Sex: Female

DRUGS (7)
  1. EFFEXOR [Concomitant]
     Indication: ANXIETY
  2. HYDROCODONE BITARTRATE [Concomitant]
     Indication: PAIN
     Dosage: 5/325MG, 1 TO 2 EVERY 4 TO 6 HOURS, AS NEEDED
  3. ARAVA [Concomitant]
     Indication: PRODUCT USED FOR UNKNOWN INDICATION
  4. VALIUM [Concomitant]
     Indication: PRODUCT USED FOR UNKNOWN INDICATION
     Dosage: 1 TO 3 TABS DAILY, AS NEEDED
  5. TRAMADOL HCL [Concomitant]
     Indication: PAIN
     Dosage: 1 TAB, 4 TIMES PER DAY, AS NEEDED
  6. EFFEXOR [Concomitant]
     Indication: PAIN
  7. HUMIRA [Suspect]
     Indication: PSORIATIC ARTHROPATHY
     Dates: start: 20110413

REACTIONS (11)
  - NAUSEA [None]
  - RASH PAPULAR [None]
  - PYREXIA [None]
  - FEELING HOT [None]
  - PRURITUS [None]
  - DIARRHOEA [None]
  - ORAL HERPES [None]
  - VAGINAL HAEMORRHAGE [None]
  - NIGHT SWEATS [None]
  - MALAISE [None]
  - ARTHRALGIA [None]
